FAERS Safety Report 16261572 (Version 5)
Quarter: 2019Q2

REPORT INFORMATION
  Report Type: Spontaneous
  Country: US (occurrence: US)
  Receive Date: 20190501
  Receipt Date: 20190618
  Transmission Date: 20190711
  Serious: Yes (Hospitalization)
  Sender: FDA-Public Use
  Company Number: US-VERTEX PHARMACEUTICALS-2019-003797

PATIENT
  Age: 51 Year
  Sex: Male

DRUGS (4)
  1. TOBI [Concomitant]
     Active Substance: TOBRAMYCIN
     Dosage: UNK
     Route: 042
  2. SYMDEKO [Suspect]
     Active Substance: IVACAFTOR\TEZACAFTOR
     Indication: CYSTIC FIBROSIS
     Dosage: TEZACAFTOR 100 MG, IVACAFTOR 150 MG QAM; IVACAFTOR 150 MG QPM
     Route: 048
     Dates: start: 201804
  3. TOBI [Concomitant]
     Active Substance: TOBRAMYCIN
     Dosage: UNK
  4. PULMOZYME [Concomitant]
     Active Substance: DORNASE ALFA
     Dosage: UNK

REACTIONS (2)
  - Infective pulmonary exacerbation of cystic fibrosis [Recovered/Resolved]
  - Pneumonia [Recovered/Resolved]

NARRATIVE: CASE EVENT DATE: 20190328
